FAERS Safety Report 5010896-0 (Version None)
Quarter: 2006Q2

REPORT INFORMATION
  Report Type: 
  Country: None (occurrence: None)
  Receive Date: 20060525
  Receipt Date: 20060514
  Transmission Date: 20061013
  Serious: Yes (Hospitalization)
  Sender: FDA-Public Use
  Company Number: JP-MERCK-0605USA03882

PATIENT
  Age: 60 Year
  Sex: Female

DRUGS (1)
  1. FOSAMAX [Suspect]
     Indication: OSTEOPOROSIS
     Route: 048
     Dates: start: 20060215, end: 20060401

REACTIONS (6)
  - ANAEMIA [None]
  - BLOOD CALCIUM DECREASED [None]
  - BONE PAIN [None]
  - DECREASED APPETITE [None]
  - HYPOKALAEMIA [None]
  - PYREXIA [None]
